FAERS Safety Report 18414195 (Version 2)
Quarter: 2020Q4

REPORT INFORMATION
  Report Type: Spontaneous
  Country: AU (occurrence: AU)
  Receive Date: 20201022
  Receipt Date: 20201106
  Transmission Date: 20210114
  Serious: Yes (Other)
  Sender: FDA-Public Use
  Company Number: AU-BTGSP-AU-BTGSP-20-0154

PATIENT
  Age: 19 Year
  Sex: Male

DRUGS (3)
  1. DIGIFAB [Suspect]
     Active Substance: OVINE DIGOXIN IMMUNE FAB
     Indication: TOXICITY TO VARIOUS AGENTS
     Dosage: 2 VIALS INITIAL DOSE
     Route: 042
  2. DIGIFAB [Suspect]
     Active Substance: OVINE DIGOXIN IMMUNE FAB
     Dosage: 3H AFTER SECOND DOSE
     Route: 042
  3. DIGIFAB [Suspect]
     Active Substance: OVINE DIGOXIN IMMUNE FAB
     Dosage: 2 VIALS 2H AFTER INITIAL
     Route: 042

REACTIONS (4)
  - Bradycardia [Recovered/Resolved]
  - Vomiting [Recovered/Resolved]
  - Off label use [Unknown]
  - Sinus arrhythmia [Recovered/Resolved]
